FAERS Safety Report 6850126-8 (Version None)
Quarter: 2010Q3

REPORT INFORMATION
  Report Type: 
  Country: None (occurrence: None)
  Receive Date: 20100716
  Receipt Date: 20071011
  Transmission Date: 20110219
  Serious: No
  Sender: FDA-Public Use
  Company Number: US-PFIZER INC-2007086361

PATIENT
  Sex: Female
  Weight: 68 kg

DRUGS (5)
  1. CHANTIX [Suspect]
     Indication: SMOKING CESSATION THERAPY
     Dates: start: 20061201, end: 20070101
  2. ADVAIR DISKUS 100/50 [Concomitant]
  3. VALSARTAN [Concomitant]
  4. METOPROLOL [Concomitant]
  5. PREMARIN [Concomitant]

REACTIONS (2)
  - NAUSEA [None]
  - VOMITING [None]
